FAERS Safety Report 9363492 (Version 2)
Quarter: 2013Q3

REPORT INFORMATION
  Report Type: Spontaneous
  Country: HR (occurrence: HR)
  Receive Date: 20130624
  Receipt Date: 20130722
  Transmission Date: 20140515
  Serious: Yes (Death)
  Sender: FDA-Public Use
  Company Number: HR-ELI_LILLY_AND_COMPANY-HR201306005057

PATIENT
  Age: 30 Year
  Sex: Male

DRUGS (3)
  1. ZYPADHERA [Suspect]
     Indication: PERSONALITY DISORDER
     Dosage: 210 MG, 2/M
     Dates: start: 20130404
  2. ZYPADHERA [Suspect]
     Dosage: 210 MG, 2/M
     Dates: start: 20130517
  3. ZYPADHERA [Suspect]
     Dosage: 300 MG, 2/M
     Dates: start: 20130419, end: 20130503

REACTIONS (1)
  - Completed suicide [Fatal]
